FAERS Safety Report 6543640-6 (Version None)
Quarter: 2010Q1

REPORT INFORMATION
  Report Type: 
  Country: None (occurrence: None)
  Receive Date: 20100120
  Receipt Date: 20100118
  Transmission Date: 20100710
  Serious: Yes (Life-Threatening)
  Sender: FDA-Public Use
  Company Number: ES-MERCK-1001ESP00010

PATIENT
  Age: 16 Year
  Sex: Female
  Weight: 60 kg

DRUGS (5)
  1. CANCIDAS [Suspect]
     Indication: CANDIDIASIS
     Route: 041
     Dates: start: 20100112, end: 20100112
  2. MEROPENEM [Concomitant]
     Route: 065
  3. CYCLOSPORINE [Concomitant]
     Route: 065
  4. HEPARIN [Concomitant]
     Route: 065
  5. FUROSEMIDE [Concomitant]
     Route: 065

REACTIONS (1)
  - ANGIOEDEMA [None]
